FAERS Safety Report 11451978 (Version 1)
Quarter: 2015Q3

REPORT INFORMATION
  Report Type: Spontaneous
  Country: US (occurrence: None)
  Receive Date: 20150902
  Receipt Date: 20150902
  Transmission Date: 20151125
  Serious: Yes (Life-Threatening, Hospitalization)
  Sender: FDA-Public Use
  Company Number: None

PATIENT
  Age: 59 Year
  Sex: Male
  Weight: 97 kg

DRUGS (11)
  1. VERAPAMIL (VERELAN) [Concomitant]
  2. XANAX [Concomitant]
     Active Substance: ALPRAZOLAM
  3. HYDROMORPHINE (DILAUDID) [Concomitant]
  4. VIEKIRA PAK [Suspect]
     Active Substance: DASABUVIR\OMBITASVIR\PARITAPREVIR\RITONAVIR
     Indication: HEPATITIS C
     Dosage: AS MANF. RECOMENDS AS MANF. RECOMENDS ORAL
     Route: 048
     Dates: start: 20150827, end: 20150828
  5. OMBITASVIR PARITAPREVIR RITONAVIR DASABUVIR (VIEKIRA PAK) [Concomitant]
  6. ASPIRIN (ECOTRIN LOW STRENGTH) [Concomitant]
  7. OMEPRAZOLE (PRILOSEC) [Concomitant]
  8. VALSARTAN (DIOVAN) [Concomitant]
  9. AMLODIPINE (NORVASC) [Concomitant]
  10. HUMULIN 70/30 KWIKPEN [Concomitant]
  11. AZATHIOPRINE (IMURAN) [Concomitant]

REACTIONS (11)
  - Atrioventricular block [None]
  - Bradycardia [None]
  - Cardiac arrest [None]
  - Hyperhidrosis [None]
  - Dizziness [None]
  - Vomiting [None]
  - Nausea [None]
  - Blood potassium increased [None]
  - Blood creatinine increased [None]
  - Muscle spasms [None]
  - Malaise [None]

NARRATIVE: CASE EVENT DATE: 20150829
